FAERS Safety Report 20703690 (Version 1)
Quarter: 2022Q2

REPORT INFORMATION
  Report Type: Spontaneous
  Country: AU (occurrence: AU)
  Receive Date: 20220413
  Receipt Date: 20220413
  Transmission Date: 20220721
  Serious: Yes (Other)
  Sender: FDA-Public Use
  Company Number: AU-BoehringerIngelheim-2022-BI-164911

PATIENT
  Age: 2 Year
  Sex: Female

DRUGS (1)
  1. CLONIDINE HYDROCHLORIDE [Suspect]
     Active Substance: CLONIDINE HYDROCHLORIDE
     Indication: Product used for unknown indication
     Dates: start: 20210326, end: 20210326

REACTIONS (3)
  - Bradycardia [Recovered/Resolved]
  - Sedation [Unknown]
  - Accidental exposure to product by child [Unknown]

NARRATIVE: CASE EVENT DATE: 20210326
